FAERS Safety Report 8863785 (Version 1)
Quarter: 2012Q4

REPORT INFORMATION
  Report Type: 
  Country: US (occurrence: US)
  Receive Date: 20121024
  Receipt Date: 20121024
  Transmission Date: 20130627
  Serious: No
  Sender: FDA-Public Use
  Company Number: US-AMGEN-USASP2011063868

PATIENT
  Age: 57 Year
  Sex: Female

DRUGS (2)
  1. ENBREL [Suspect]
     Indication: RHEUMATOID ARTHRITIS
     Dosage: 50 mg, qwk
     Dates: start: 20110322, end: 201110
  2. HUMIRA [Concomitant]
     Dosage: UNK
     Dates: start: 201111

REACTIONS (2)
  - Therapeutic response decreased [Recovered/Resolved]
  - Rheumatoid arthritis [Not Recovered/Not Resolved]
